FAERS Safety Report 8795130 (Version 4)
Quarter: 2015Q3

REPORT INFORMATION
  Report Type: Spontaneous
  Country: US (occurrence: US)
  Receive Date: 20120917
  Receipt Date: 20150707
  Transmission Date: 20151125
  Serious: Yes (Hospitalization, Disabling, Other)
  Sender: FDA-Public Use
  Company Number: US-009507513-1207USA00061

PATIENT
  Sex: Female
  Weight: 57.14 kg

DRUGS (7)
  1. CARDIZEM CD [Concomitant]
     Active Substance: DILTIAZEM HYDROCHLORIDE
     Dosage: 180 MG, QD
  2. FOSAMAX [Suspect]
     Active Substance: ALENDRONATE SODIUM
     Indication: OSTEOPOROSIS
     Dosage: 70 MG, QW
     Route: 048
     Dates: start: 19950809
  3. CLARITIN [Concomitant]
     Active Substance: LORATADINE
     Indication: SEASONAL ALLERGY
     Dosage: 10 MG, PRN
  4. MAXZIDE [Concomitant]
     Active Substance: HYDROCHLOROTHIAZIDE\TRIAMTERENE
     Dosage: 25 MG, QD
  5. FOSAMAX [Suspect]
     Active Substance: ALENDRONATE SODIUM
     Indication: OSTEOPENIA
     Dosage: 5 MG, QD
     Route: 048
  6. ALENDRONATE SODIUM. [Suspect]
     Active Substance: ALENDRONATE SODIUM
     Indication: OSTEOPOROSIS
     Dosage: 70 MG, UNK
     Route: 048
     Dates: start: 200805
  7. K-DUR [Concomitant]
     Active Substance: POTASSIUM CHLORIDE
     Dosage: 20 MEQ, QD

REACTIONS (40)
  - Femur fracture [Unknown]
  - Polypectomy [Unknown]
  - Haemorrhoidal haemorrhage [Unknown]
  - Haemorrhoids [Unknown]
  - Dermatophytosis of nail [Unknown]
  - Hypokalaemia [Unknown]
  - Renal cyst [Unknown]
  - Diverticulum [Unknown]
  - Haemangioma of liver [Unknown]
  - Adrenal adenoma [Unknown]
  - Oedema [Unknown]
  - Abdominal pain [Unknown]
  - Hypoacusis [Unknown]
  - Varicose vein [Unknown]
  - Phlebitis [Recovering/Resolving]
  - Localised infection [Unknown]
  - Osteoporosis [Unknown]
  - Polypectomy [Unknown]
  - Hypertension [Unknown]
  - Hyperlipidaemia [Unknown]
  - Ear congestion [Unknown]
  - Bone lesion [Unknown]
  - Impaired fasting glucose [Unknown]
  - Closed fracture manipulation [Unknown]
  - Tooth disorder [Unknown]
  - Femur fracture [Unknown]
  - Sinus congestion [Unknown]
  - Abdominal hernia [Unknown]
  - Deep vein thrombosis [Unknown]
  - Hyperkeratosis [Unknown]
  - Flatulence [Unknown]
  - Haemorrhoid operation [Unknown]
  - Large intestine polyp [Unknown]
  - Low turnover osteopathy [Unknown]
  - Foot fracture [Unknown]
  - Type 2 diabetes mellitus [Unknown]
  - Irritable bowel syndrome [Unknown]
  - Skin papilloma [Unknown]
  - Pain in extremity [Unknown]
  - Pain in extremity [Unknown]

NARRATIVE: CASE EVENT DATE: 1995
